FAERS Safety Report 5028919-1 (Version None)
Quarter: 2006Q2

REPORT INFORMATION
  Report Type: 
  Country: None (occurrence: None)
  Receive Date: 20060619
  Receipt Date: 20060609
  Transmission Date: 20061013
  Serious: Yes (Hospitalization)
  Sender: FDA-Public Use
  Company Number: GB-GLAXOSMITHKLINE-B0427526A

PATIENT
  Sex: Female

DRUGS (7)
  1. CEPHALEXIN [Suspect]
     Indication: URINARY TRACT INFECTION
     Route: 065
  2. METRONIDAZOLE [Suspect]
     Indication: URINARY TRACT INFECTION
     Route: 065
  3. TRIMETHOPRIM [Suspect]
     Indication: URINARY TRACT INFECTION
     Route: 065
  4. WARFARIN SODIUM [Suspect]
     Indication: PULMONARY EMBOLISM
     Route: 065
  5. ACEBUTOLOL [Concomitant]
     Route: 065
  6. INDAPAMIDE [Concomitant]
     Route: 065
  7. NIFEDIPINE [Concomitant]
     Route: 065

REACTIONS (12)
  - ABDOMINAL PAIN [None]
  - DEEP VEIN THROMBOSIS [None]
  - DRUG INTERACTION [None]
  - HAEMOGLOBIN DECREASED [None]
  - HYPOVOLAEMIC SHOCK [None]
  - INTERNATIONAL NORMALISED RATIO INCREASED [None]
  - MALAISE [None]
  - MUSCLE HAEMORRHAGE [None]
  - PAIN [None]
  - PYREXIA [None]
  - RETROPERITONEAL HAEMATOMA [None]
  - WHITE BLOOD CELL COUNT INCREASED [None]
